FAERS Safety Report 9337094 (Version 1)
Quarter: 2013Q2

REPORT INFORMATION
  Report Type: Spontaneous
  Country: US (occurrence: US)
  Receive Date: 20130607
  Receipt Date: 20130607
  Transmission Date: 20140414
  Serious: No
  Sender: FDA-Public Use
  Company Number: US-009507513-1306USA002303

PATIENT
  Age: 50 Year
  Sex: Female

DRUGS (6)
  1. JANUMET XR [Suspect]
     Indication: TYPE 2 DIABETES MELLITUS
     Dosage: 50 MG/1000 MG, BID
     Route: 048
     Dates: start: 201301
  2. GLIMEPIRIDE [Concomitant]
     Dosage: UNK
  3. CITALOPRAM HYDROBROMIDE [Concomitant]
     Dosage: UNK
  4. PRINIVIL [Concomitant]
  5. INSULIN [Concomitant]
  6. [THERAPY UNSPECIFIED] [Concomitant]
     Dosage: UNK

REACTIONS (1)
  - Medication residue present [Not Recovered/Not Resolved]
